FAERS Safety Report 16731458 (Version 2)
Quarter: 2019Q3

REPORT INFORMATION
  Report Type: Spontaneous
  Country: PT (occurrence: PT)
  Receive Date: 20190822
  Receipt Date: 20190930
  Transmission Date: 20191005
  Serious: Yes (Other)
  Sender: FDA-Public Use
  Company Number: PT-GLAXOSMITHKLINE-PT2019GSK151474

PATIENT
  Age: 51 Year
  Sex: Female

DRUGS (10)
  1. HOODIA GORDONII [Interacting]
     Active Substance: DIETARY SUPPLEMENT
     Indication: WEIGHT DECREASED
     Dosage: UNK
     Route: 065
  2. BUPROPION. [Suspect]
     Active Substance: BUPROPION
     Indication: WEIGHT DECREASED
     Dosage: UNK
     Route: 065
  3. FUROSEMIDE. [Interacting]
     Active Substance: FUROSEMIDE
     Indication: WEIGHT DECREASED
     Dosage: UNK
     Route: 065
  4. CHLORDIAZEPOXIDE. [Interacting]
     Active Substance: CHLORDIAZEPOXIDE
     Indication: WEIGHT DECREASED
     Dosage: UNK
     Route: 065
  5. GESTODENE [Suspect]
     Active Substance: GESTODENE
     Indication: ORAL CONTRACEPTION
     Dosage: 0.075 MG, UNK
     Route: 048
  6. ORANGE EXTRACT [Suspect]
     Active Substance: DIETARY SUPPLEMENT\HERBALS
     Indication: WEIGHT DECREASED
     Dosage: UNK
     Route: 065
  7. TOPIRAMATE. [Interacting]
     Active Substance: TOPIRAMATE
     Indication: WEIGHT DECREASED
     Dosage: UNK
     Route: 065
  8. CASCARA SAGRADA [Interacting]
     Active Substance: FRANGULA PURSHIANA BARK
     Indication: WEIGHT DECREASED
     Dosage: UNK
     Route: 065
  9. ETHINYLESTRADIOL AND GESTODENE [Interacting]
     Active Substance: ETHINYL ESTRADIOL\GESTODENE
     Indication: ORAL CONTRACEPTION
     Dosage: UNK (0.03  / 0.075 MG)
     Route: 048
  10. METFORMIN [Interacting]
     Active Substance: METFORMIN HYDROCHLORIDE
     Indication: WEIGHT DECREASED
     Dosage: UNK
     Route: 065

REACTIONS (2)
  - Cerebral venous thrombosis [Unknown]
  - Drug interaction [Unknown]
